FAERS Safety Report 4774158-9 (Version None)
Quarter: 2005Q3

REPORT INFORMATION
  Report Type: 
  Country: None (occurrence: None)
  Receive Date: 20050914
  Receipt Date: 20050401
  Transmission Date: 20060218
  Serious: Yes (Other)
  Sender: FDA-Public Use
  Company Number: 163-20785-05040198

PATIENT
  Sex: Male

DRUGS (2)
  1. THALIDOMIDE OR PLACEBO (THALIDOMIDE) (CAPSULES) [Suspect]
     Indication: PROSTATIC INTRAEPITHELIAL NEOPLASIA
     Dosage: 200MG OR PLACEBO TILL PSA PROGRESSION, QHS, ORAL
     Route: 048
  2. LEUPROLIDE ACETATE [Suspect]
     Indication: PROSTATIC INTRAEPITHELIAL NEOPLASIA
     Dosage: SEE IMAGE

REACTIONS (3)
  - ARRHYTHMIA SUPRAVENTRICULAR [None]
  - ASTHENIA [None]
  - ERECTILE DYSFUNCTION [None]
